FAERS Safety Report 4694166-6 (Version None)
Quarter: 2005Q2

REPORT INFORMATION
  Report Type: 
  Country: None (occurrence: None)
  Receive Date: 20050614
  Receipt Date: 20050303
  Transmission Date: 20051028
  Serious: No
  Sender: FDA-Public Use
  Company Number: USA050291634

PATIENT
  Age: 46 Year
  Sex: Male
  Weight: 130 kg

DRUGS (1)
  1. CIALIS [Suspect]
     Indication: ERECTILE DYSFUNCTION
     Dosage: 20 MG

REACTIONS (2)
  - EJACULATION DELAYED [None]
  - ERECTION INCREASED [None]
